FAERS Safety Report 4418524-X (Version None)
Quarter: 2004Q3

REPORT INFORMATION
  Report Type: 
  Country: None (occurrence: None)
  Receive Date: 20040809
  Receipt Date: 20040520
  Transmission Date: 20050211
  Serious: No
  Sender: FDA-Public Use
  Company Number: US-GLAXOSMITHKLINE-A0511621A

PATIENT
  Age: 49 Year
  Sex: Female

DRUGS (2)
  1. PAXIL CR [Suspect]
     Indication: OBSESSIVE-COMPULSIVE DISORDER
     Dosage: 12.5MG PER DAY
     Route: 048
     Dates: start: 20040518
  2. BEXTRA [Concomitant]

REACTIONS (1)
  - DIARRHOEA [None]
